FAERS Safety Report 8264110-3 (Version None)
Quarter: 2012Q2

REPORT INFORMATION
  Report Type: 
  Country: None (occurrence: None)
  Receive Date: 20120406
  Receipt Date: 20120328
  Transmission Date: 20120825
  Serious: No
  Sender: FDA-Public Use
  Company Number: US-BIOGENIDEC-2012BI011365

PATIENT
  Age: 31 Year
  Sex: Female

DRUGS (4)
  1. TYSABRI [Suspect]
     Indication: MULTIPLE SCLEROSIS
     Route: 042
     Dates: start: 20080911, end: 20080911
  2. TYSABRI [Suspect]
     Route: 042
     Dates: start: 20090507, end: 20110519
  3. AVONEX [Concomitant]
     Indication: MULTIPLE SCLEROSIS
     Route: 030
  4. TYSABRI [Suspect]
     Route: 042
     Dates: start: 20120308

REACTIONS (3)
  - FATIGUE [None]
  - BLINDNESS UNILATERAL [None]
  - DEPRESSION [None]
